FAERS Safety Report 4504030-0 (Version None)
Quarter: 2004Q3

REPORT INFORMATION
  Report Type: 
  Country: None (occurrence: None)
  Receive Date: 20040927
  Receipt Date: 20040629
  Transmission Date: 20050211
  Serious: No
  Sender: FDA-Public Use
  Company Number: USA040671406

PATIENT
  Age: 5 Year
  Sex: Female
  Weight: 35 kg

DRUGS (3)
  1. STRATTERA [Suspect]
     Dosage: 30 MG
     Dates: start: 20040628
  2. ZYRTEC [Concomitant]
  3. FLONASE [Concomitant]

REACTIONS (3)
  - ABDOMINAL PAIN UPPER [None]
  - DECREASED APPETITE [None]
  - DYSGEUSIA [None]
